FAERS Safety Report 8887096 (Version 1)
Quarter: 2012Q4

REPORT INFORMATION
  Report Type: 
  Country: DE (occurrence: DE)
  Receive Date: 20121105
  Receipt Date: 20121105
  Transmission Date: 20130627
  Serious: Yes (Life-Threatening, Other)
  Sender: FDA-Public Use
  Company Number: DE-ASTRAZENECA-2012SE83285

PATIENT
  Sex: Male

DRUGS (1)
  1. SEROQUEL PROLONG [Suspect]
     Route: 048
     Dates: start: 201207

REACTIONS (3)
  - Aneurysm ruptured [Unknown]
  - Intraocular pressure increased [Unknown]
  - Hypotension [Unknown]
